FAERS Safety Report 19071936 (Version 1)
Quarter: 2021Q1

REPORT INFORMATION
  Report Type: Spontaneous
  Country: US (occurrence: US)
  Receive Date: 20210330
  Receipt Date: 20210330
  Transmission Date: 20210420
  Serious: No
  Sender: FDA-Public Use
  Company Number: US-B.I. PHARMACEUTICALS,INC./RIDGEFIELD-2021-BI-091931

PATIENT
  Age: 58 Year
  Sex: Female

DRUGS (1)
  1. SPIRIVA [Suspect]
     Active Substance: TIOTROPIUM BROMIDE MONOHYDRATE
     Indication: CHRONIC OBSTRUCTIVE PULMONARY DISEASE
     Dosage: 1 CAPSULE 2 PUFFS A DAY
     Route: 065
     Dates: start: 202101

REACTIONS (4)
  - Intentional product use issue [Recovered/Resolved]
  - Product complaint [Unknown]
  - Product dispensing error [Unknown]
  - Product physical issue [Unknown]

NARRATIVE: CASE EVENT DATE: 20210317
